FAERS Safety Report 10472691 (Version 2)
Quarter: 2014Q3

REPORT INFORMATION
  Report Type: Spontaneous
  Country: JP (occurrence: JP)
  Receive Date: 20140924
  Receipt Date: 20140926
  Transmission Date: 20150326
  Serious: Yes (Life-Threatening, Other)
  Sender: FDA-Public Use
  Company Number: JP-ASTRAZENECA-2014SE70919

PATIENT
  Age: 68 Year
  Sex: Male
  Weight: 65 kg

DRUGS (5)
  1. SEVOFLURANE. [Concomitant]
     Active Substance: SEVOFLURANE
     Indication: INDUCTION AND MAINTENANCE OF ANAESTHESIA
     Dosage: DOSE UNKNOWN
     Route: 055
  2. REMIFENTANIL HYDROCHLORIDE [Concomitant]
     Active Substance: REMIFENTANIL HYDROCHLORIDE
     Indication: INDUCTION AND MAINTENANCE OF ANAESTHESIA
     Dosage: DOSE UNKNOWN
     Route: 042
  3. OXYGEN. [Concomitant]
     Active Substance: OXYGEN
     Indication: INDUCTION AND MAINTENANCE OF ANAESTHESIA
     Dosage: DOSE UNKNOWN
     Route: 055
  4. PROPOFOL (NON AZ PRODUCT) [Suspect]
     Active Substance: PROPOFOL
     Indication: INDUCTION OF ANAESTHESIA
     Dosage: DOSE UNKNOWN
     Route: 042
  5. ANTIHYPERTENSIVES [Concomitant]
     Active Substance: UNSPECIFIED INGREDIENT
     Indication: HYPERTENSION
     Dosage: DOSE UNKNOWN
     Route: 065

REACTIONS (3)
  - Stress cardiomyopathy [Unknown]
  - Ventricular tachycardia [Recovered/Resolved]
  - Cardiac arrest [Recovered/Resolved]
